FAERS Safety Report 10956976 (Version 1)
Quarter: 2015Q1

REPORT INFORMATION
  Report Type: Spontaneous
  Country: FR (occurrence: FR)
  Receive Date: 20150326
  Receipt Date: 20150326
  Transmission Date: 20150721
  Serious: Yes (Other)
  Sender: FDA-Public Use
  Company Number: FR-ASTRAZENECA-2015SE27475

PATIENT
  Age: 13729 Day
  Sex: Female

DRUGS (2)
  1. NAROPEINE [Suspect]
     Active Substance: ROPIVACAINE HYDROCHLORIDE
     Indication: ANAESTHESIA
     Route: 042
     Dates: start: 20150121, end: 20150121
  2. LIDOCAINE AGUETTANT [Suspect]
     Active Substance: LIDOCAINE
     Indication: ANAESTHESIA
     Route: 042
     Dates: start: 20150121, end: 20150121

REACTIONS (3)
  - Vertigo [Recovered/Resolved]
  - Formication [Recovered/Resolved]
  - Clonus [Unknown]

NARRATIVE: CASE EVENT DATE: 20150121
